FAERS Safety Report 5194161-7 (Version None)
Quarter: 2006Q4

REPORT INFORMATION
  Report Type: 
  Country: None (occurrence: None)
  Receive Date: 20061228
  Receipt Date: 20061215
  Transmission Date: 20070319
  Serious: Yes (Hospitalization)
  Sender: FDA-Public Use
  Company Number: IT-SANOFI-SYNTHELABO-A06200600420

PATIENT
  Sex: Female

DRUGS (2)
  1. ELOXATIN [Suspect]
     Indication: COLON CANCER
     Route: 041
     Dates: start: 20061114, end: 20061114
  2. ELOXATIN [Suspect]
     Indication: CHEMOTHERAPY
     Route: 041
     Dates: start: 20061114, end: 20061114

REACTIONS (5)
  - DEHYDRATION [None]
  - DIARRHOEA [None]
  - NEUTROPENIA [None]
  - OESOPHAGEAL ULCER [None]
  - VOMITING [None]
